FAERS Safety Report 24770835 (Version 2)
Quarter: 2025Q1

REPORT INFORMATION
  Report Type: Spontaneous
  Country: JP (occurrence: JP)
  Receive Date: 20241224
  Receipt Date: 20250128
  Transmission Date: 20250409
  Serious: Yes (Hospitalization, Other)
  Sender: ALEXION PHARMACEUTICALS
  Company Number: JP-ASTRAZENECA-240142080_063010_P_1

PATIENT

DRUGS (2)
  1. DAPAGLIFLOZIN [Suspect]
     Active Substance: DAPAGLIFLOZIN
     Indication: Type 2 diabetes mellitus
     Dosage: 5 MILLIGRAM, QD
  2. DAPAGLIFLOZIN [Suspect]
     Active Substance: DAPAGLIFLOZIN

REACTIONS (2)
  - Fall [Unknown]
  - Fracture [Unknown]
